FAERS Safety Report 5023164-8 (Version None)
Quarter: 2006Q2

REPORT INFORMATION
  Report Type: 
  Country: None (occurrence: None)
  Receive Date: 20060612
  Receipt Date: 20060606
  Transmission Date: 20061013
  Serious: Yes (Hospitalization)
  Sender: FDA-Public Use
  Company Number: FR-JNJFOC-20060601271

PATIENT
  Age: 70 Year
  Sex: Male
  Weight: 75 kg

DRUGS (11)
  1. DURAGESIC-100 [Suspect]
     Indication: PAIN
     Route: 062
  2. CORTANCYL [Concomitant]
     Route: 065
  3. DUPHALAC [Concomitant]
     Route: 065
  4. LASILIX [Concomitant]
     Route: 065
  5. MOVICOL [Concomitant]
     Route: 065
  6. MOVICOL [Concomitant]
     Route: 065
  7. MOVICOL [Concomitant]
     Route: 065
  8. MOVICOL [Concomitant]
     Route: 065
  9. NOVOMIX [Concomitant]
     Route: 065
  10. DIFFU-K [Concomitant]
     Route: 065
  11. SPECIAFOLDINE [Concomitant]
     Route: 065

REACTIONS (1)
  - COMA [None]
